FAERS Safety Report 9536354 (Version 2)
Quarter: 2013Q3

REPORT INFORMATION
  Report Type: Spontaneous
  Country: US (occurrence: None)
  Receive Date: 20130507
  Receipt Date: 20130724
  Transmission Date: 20140515
  Serious: Yes (Other)
  Sender: FDA-Public Use
  Company Number: PHEH2013US001172

PATIENT
  Age: 68 Year
  Sex: Female
  Weight: 67.6 kg

DRUGS (5)
  1. AFINITOR (RAD) [Suspect]
     Indication: BREAST CANCER
     Route: 048
     Dates: end: 20130111
  2. SYNTHROID (LEVOTHYROXINE SODIUM) [Concomitant]
  3. OXYCODONE [Concomitant]
  4. ZOLEDRONIC ACID [Concomitant]
  5. HERCEPTIN (TRASTUZUMAB) [Concomitant]

REACTIONS (1)
  - Rash [None]
